FAERS Safety Report 8895641 (Version 1)
Quarter: 2012Q4

REPORT INFORMATION
  Report Type: 
  Country: US (occurrence: US)
  Receive Date: 20121108
  Receipt Date: 20121108
  Transmission Date: 20130627
  Serious: Yes (Other)
  Sender: FDA-Public Use
  Company Number: US-GENZYME-CERZ-1002694

PATIENT
  Age: 45 Year
  Sex: Female
  Weight: 80 kg

DRUGS (2)
  1. CEREZYME [Suspect]
     Indication: GAUCHER^S DISEASE
     Dosage: 60 U/kg, q2w
     Route: 042
  2. ANTIBIOTICS [Concomitant]
     Indication: STAPHYLOCOCCAL INFECTION
     Route: 065

REACTIONS (2)
  - Staphylococcal infection [Unknown]
  - Ankle fracture [Unknown]
